FAERS Safety Report 5729226-1 (Version None)
Quarter: 2008Q2

REPORT INFORMATION
  Report Type: 
  Country: None (occurrence: None)
  Receive Date: 20080430
  Receipt Date: 20071226
  Transmission Date: 20081010
  Serious: No
  Sender: FDA-Public Use
  Company Number: 2007PV033882

PATIENT
  Age: 62 Year
  Sex: Female
  Weight: 89.8122 kg

DRUGS (10)
  1. SYMLIN [Suspect]
     Indication: TYPE 1 DIABETES MELLITUS
     Dosage: 42 MCG;BID;SC ; SC ; 15 MCG;BID;SC ; 48 MCG;BID;SC ; SC ; 15 MCG;BID;SC
     Route: 058
     Dates: start: 20070101, end: 20070101
  2. SYMLIN [Suspect]
     Indication: TYPE 1 DIABETES MELLITUS
     Dosage: 42 MCG;BID;SC ; SC ; 15 MCG;BID;SC ; 48 MCG;BID;SC ; SC ; 15 MCG;BID;SC
     Route: 058
     Dates: start: 20070101, end: 20070101
  3. SYMLIN [Suspect]
     Indication: TYPE 1 DIABETES MELLITUS
     Dosage: 42 MCG;BID;SC ; SC ; 15 MCG;BID;SC ; 48 MCG;BID;SC ; SC ; 15 MCG;BID;SC
     Route: 058
     Dates: start: 20070101, end: 20070101
  4. SYMLIN [Suspect]
     Indication: TYPE 1 DIABETES MELLITUS
     Dosage: 42 MCG;BID;SC ; SC ; 15 MCG;BID;SC ; 48 MCG;BID;SC ; SC ; 15 MCG;BID;SC
     Route: 058
     Dates: start: 20070101, end: 20070101
  5. SYMLIN [Suspect]
     Indication: TYPE 1 DIABETES MELLITUS
     Dosage: 42 MCG;BID;SC ; SC ; 15 MCG;BID;SC ; 48 MCG;BID;SC ; SC ; 15 MCG;BID;SC
     Route: 058
     Dates: start: 20070201, end: 20070101
  6. SYMLIN [Suspect]
     Indication: TYPE 1 DIABETES MELLITUS
     Dosage: 42 MCG;BID;SC ; SC ; 15 MCG;BID;SC ; 48 MCG;BID;SC ; SC ; 15 MCG;BID;SC
     Route: 058
     Dates: start: 20070101
  7. NOVOLOG [Concomitant]
  8. CALCIUM [Concomitant]
  9. BLOOD PRESSURE PILLS [Concomitant]
  10. LYRICA [Concomitant]

REACTIONS (2)
  - DRUG EFFECT DECREASED [None]
  - NAUSEA [None]
